FAERS Safety Report 8920184 (Version 8)
Quarter: 2013Q4

REPORT INFORMATION
  Report Type: Spontaneous
  Country: GB (occurrence: GB)
  Receive Date: 20121122
  Receipt Date: 20131017
  Transmission Date: 20140711
  Serious: Yes (Death, Hospitalization, Other)
  Sender: FDA-Public Use
  Company Number: PHFR2012GB005986

PATIENT
  Age: 70 Year
  Sex: Male
  Weight: 57 kg

DRUGS (18)
  1. CLOZARIL [Suspect]
     Indication: SCHIZOPHRENIA
     Dosage: 150 MG, UNK
     Route: 048
     Dates: start: 1992
  2. CLOZARIL [Suspect]
     Dosage: 150 MG, BID
     Route: 048
     Dates: start: 20050124
  3. CLOZARIL [Suspect]
     Dosage: UNK
     Route: 048
     Dates: start: 20121114
  4. SIMVASTATIN [Concomitant]
     Indication: BLOOD CHOLESTEROL INCREASED
     Dosage: 40 MG, UNK
     Route: 048
     Dates: start: 20110815
  5. RAMIPRIL [Concomitant]
     Indication: BLOOD PRESSURE ABNORMAL
     Dosage: 5 MG, UNK
     Route: 048
     Dates: start: 20080703
  6. GLICLAZIDE [Concomitant]
     Indication: DIABETES MELLITUS
     Dosage: 80 MG, UNK
     Route: 048
     Dates: start: 20030419
  7. CALCIUM+VIT D [Concomitant]
     Indication: VITAMIN D DECREASED
     Dosage: UNK UKN, BID
     Route: 048
     Dates: start: 20111221
  8. CALCIUM+VIT D [Concomitant]
     Indication: BLOOD CALCIUM DECREASED
  9. METFORMIN [Concomitant]
     Indication: DIABETES MELLITUS
     Dosage: 500 MG, UNK
     Route: 048
     Dates: start: 20030419
  10. LAXIDO ORANGE [Concomitant]
     Indication: CONSTIPATION
     Dosage: UNK UNK, BID
     Route: 048
     Dates: start: 20121018
  11. LAXIDO [Concomitant]
     Dosage: UNK UKN, UNK
  12. ADCAL-D3 [Concomitant]
     Dosage: UNK UKN, UNK
  13. SODIUM CARBONATE [Concomitant]
     Dosage: UNK UKN, UNK
  14. POTASSIUM CHLORIDE [Concomitant]
     Dosage: UNK UKN, UNK
  15. MACROGOL 3350 [Concomitant]
     Dosage: UNK UKN, UNK
  16. SODIUM CHLORIDE [Concomitant]
     Dosage: UNK UKN, UNK
  17. CALCIUM CARBONATE [Concomitant]
     Dosage: UNK UKN, UNK
  18. COLECALCIFEROL [Concomitant]
     Dosage: UNK UKN, UNK

REACTIONS (12)
  - Intestinal obstruction [Fatal]
  - Multi-organ failure [Fatal]
  - Schizophrenia [Fatal]
  - Hypertensive heart disease [Fatal]
  - Abdominal sepsis [Fatal]
  - Megacolon [Fatal]
  - Renal failure acute [Fatal]
  - Diabetes mellitus [Fatal]
  - Peritonitis [Fatal]
  - Constipation [Fatal]
  - Faecaloma [Fatal]
  - Myocardial infarction [Fatal]
